FAERS Safety Report 22276659 (Version 2)
Quarter: 2023Q2

REPORT INFORMATION
  Report Type: Report from Study
  Country: FR (occurrence: FR)
  Receive Date: 20230503
  Receipt Date: 20230510
  Transmission Date: 20230722
  Serious: Yes (Other)
  Sender: FDA-Public Use
  Company Number: FR-MYLANLABS-2023M1040283

PATIENT

DRUGS (2)
  1. IMATINIB [Suspect]
     Active Substance: IMATINIB
     Indication: Dermatofibrosarcoma protuberans
     Dosage: UNK UNK, ONCE A DAY (RECEIVED AT A DOSE 400 TO 800MG)
     Route: 065
  2. PAZOPANIB [Suspect]
     Active Substance: PAZOPANIB
     Indication: Dermatofibrosarcoma protuberans
     Dosage: UNK UNK, ONCE A DAY ()(RECEIVED AT A DOSE 600 TO 800 MG)
     Route: 065

REACTIONS (3)
  - Disease progression [Unknown]
  - Drug ineffective [Unknown]
  - Treatment failure [Unknown]
